FAERS Safety Report 17156824 (Version 1)
Quarter: 2019Q4

REPORT INFORMATION
  Report Type: Spontaneous
  Country: US (occurrence: US)
  Receive Date: 20191216
  Receipt Date: 20191216
  Transmission Date: 20200122
  Serious: Yes (Death, Other)
  Sender: FDA-Public Use
  Company Number: US-AMGEN-USASP2019206773

PATIENT
  Sex: Male

DRUGS (2)
  1. ELTROMBOPAG [Concomitant]
     Active Substance: ELTROMBOPAG
     Indication: THROMBOCYTOPENIA
     Dosage: UNK
  2. FILGRASTIM [Suspect]
     Active Substance: FILGRASTIM
     Indication: CYTOPENIA
     Dosage: UNK
     Route: 065

REACTIONS (1)
  - B-cell lymphoma recurrent [Fatal]
